FAERS Safety Report 5126843-7 (Version None)
Quarter: 2006Q4

REPORT INFORMATION
  Report Type: 
  Country: None (occurrence: None)
  Receive Date: 20061013
  Receipt Date: 20060927
  Transmission Date: 20070319
  Serious: Yes (Other)
  Sender: FDA-Public Use
  Company Number: AU-ROCHE-465114

PATIENT
  Age: 37 Year
  Sex: Male
  Weight: 89.9 kg

DRUGS (3)
  1. PEGASYS [Suspect]
     Indication: HEPATITIS C
     Route: 065
     Dates: start: 20060615
  2. RIBAVIRIN [Suspect]
     Indication: HEPATITIS C
     Route: 065
     Dates: start: 20060615
  3. ZOLPIDEM TARTRATE [Concomitant]
     Dates: start: 20060622

REACTIONS (6)
  - AFFECT LABILITY [None]
  - EMOTIONAL DISORDER [None]
  - GINGIVAL RECESSION [None]
  - INSOMNIA [None]
  - MOUTH ULCERATION [None]
  - NASOPHARYNGITIS [None]
